FAERS Safety Report 6493182-1 (Version None)
Quarter: 2009Q4

REPORT INFORMATION
  Report Type: 
  Country: None (occurrence: None)
  Receive Date: 20091214
  Receipt Date: 20091203
  Transmission Date: 20100525
  Serious: Yes (Other)
  Sender: FDA-Public Use
  Company Number: US-BAYER-200941812NA

PATIENT
  Age: 41 Year
  Sex: Female
  Weight: 47 kg

DRUGS (1)
  1. MIRENA [Suspect]
     Indication: MENOMETRORRHAGIA
     Dosage: CONTINUOUS
     Route: 015
     Dates: start: 20080101, end: 20090529

REACTIONS (4)
  - ABDOMINAL PAIN LOWER [None]
  - DEVICE DISLOCATION [None]
  - MENOMETRORRHAGIA [None]
  - VAGINAL HAEMORRHAGE [None]
